FAERS Safety Report 8308413-2 (Version None)
Quarter: 2012Q2

REPORT INFORMATION
  Report Type: 
  Country: None (occurrence: None)
  Receive Date: 20120420
  Receipt Date: 20120409
  Transmission Date: 20120825
  Serious: Yes (Hospitalization, Other)
  Sender: FDA-Public Use
  Company Number: AUR-APL-2012-01836

PATIENT
  Age: 43 Year
  Sex: Male
  Weight: 70 kg

DRUGS (6)
  1. COD LIVER OIL FORTIFIED TAB [Concomitant]
  2. ACETAMINOPHEN [Concomitant]
  3. ZINC (ZINC) [Concomitant]
  4. ASCORBIC ACID [Concomitant]
  5. SIMVASTATIN [Suspect]
     Indication: BLOOD CHOLESTEROL INCREASED
     Dosage: 40 MG (40 MG, 1 IN 1 D), ORAL
     Route: 048
     Dates: start: 20120303, end: 20120317
  6. UNSPECIFIED MULTIVITAMINS (MULTIVITAMINS) [Concomitant]

REACTIONS (2)
  - MYOSITIS [None]
  - HEPATITIS [None]
